FAERS Safety Report 6657297-7 (Version None)
Quarter: 2010Q1

REPORT INFORMATION
  Report Type: 
  Country: None (occurrence: None)
  Receive Date: 20100319
  Receipt Date: 20091014
  Transmission Date: 20100710
  Serious: Yes (Hospitalization, Other)
  Sender: FDA-Public Use
  Company Number: 2009SP030609

PATIENT
  Age: 19 Year
  Sex: Female
  Weight: 51.2565 kg

DRUGS (8)
  1. PEG-INTRON [Suspect]
     Indication: HEPATITIS C
     Dosage: 80 MCG; QW; SC
     Route: 058
     Dates: start: 20090315
  2. RIBAVIRIN [Suspect]
     Indication: HEPATITIS C
     Dosage: 800 MG; QD; PO
     Route: 048
     Dates: start: 20090315
  3. SUBOXONE [Concomitant]
  4. KLONOPIN [Concomitant]
  5. REMERON [Concomitant]
  6. AMBIEN [Concomitant]
  7. MOTRIN [Concomitant]
  8. NICODERM [Concomitant]

REACTIONS (4)
  - DIZZINESS [None]
  - PNEUMONIA [None]
  - PYREXIA [None]
  - SEPSIS [None]
